FAERS Safety Report 9882449 (Version 1)
Quarter: 2014Q1

REPORT INFORMATION
  Report Type: Spontaneous
  Country: CA (occurrence: CA)
  Receive Date: 20140207
  Receipt Date: 20140207
  Transmission Date: 20141002
  Serious: Yes (Life-Threatening, Hospitalization)
  Sender: FDA-Public Use
  Company Number: CA-BAYER-2014-016391

PATIENT
  Age: 85 Year
  Sex: Male
  Weight: 77.55 kg

DRUGS (1)
  1. GADOVIST [Suspect]
     Indication: NUCLEAR MAGNETIC RESONANCE IMAGING
     Dosage: 7.5 ML, UNK
     Route: 042
     Dates: start: 20140121

REACTIONS (5)
  - Unresponsive to stimuli [Recovered/Resolved]
  - Grunting [Recovered/Resolved]
  - Muscle rigidity [Recovered/Resolved]
  - Foaming at mouth [Recovered/Resolved]
  - Pulse absent [Recovered/Resolved]
